FAERS Safety Report 7079513-2 (Version None)
Quarter: 2010Q4

REPORT INFORMATION
  Report Type: 
  Country: None (occurrence: None)
  Receive Date: 20101102
  Receipt Date: 20101020
  Transmission Date: 20110411
  Serious: Yes (Hospitalization)
  Sender: FDA-Public Use
  Company Number: BR-GENENTECH-306961

PATIENT
  Sex: Female
  Weight: 78 kg

DRUGS (6)
  1. RITUXIMAB [Suspect]
     Indication: RHEUMATOID ARTHRITIS
     Dosage: 1000 MG, UNK
     Route: 042
     Dates: start: 20090820, end: 20090908
  2. METICORTEN [Concomitant]
     Indication: PRODUCT USED FOR UNKNOWN INDICATION
     Dosage: UNK
  3. TRYPTANOL [Concomitant]
     Indication: PRODUCT USED FOR UNKNOWN INDICATION
     Dosage: 25 MG, UNK
  4. PREDNISONE [Concomitant]
     Indication: PRODUCT USED FOR UNKNOWN INDICATION
     Dosage: 10 MG, UNK
  5. PREDNISONE [Concomitant]
     Dosage: 5 MG, UNK
  6. DIOSMIN [Concomitant]
     Indication: PRODUCT USED FOR UNKNOWN INDICATION
     Dosage: 450 MG, UNK

REACTIONS (7)
  - ARTHRALGIA [None]
  - ERYSIPELAS [None]
  - HYPERSENSITIVITY [None]
  - LIMB INJURY [None]
  - NEPHROCALCINOSIS [None]
  - URETHRAL DISORDER [None]
  - VARICOSE VEIN [None]
